FAERS Safety Report 22104242 (Version 1)
Quarter: 2023Q1

REPORT INFORMATION
  Report Type: Spontaneous
  Country: US (occurrence: None)
  Receive Date: 20230316
  Receipt Date: 20230316
  Transmission Date: 20230418
  Serious: Yes (Hospitalization)
  Sender: FDA-Public Use
  Company Number: None

PATIENT
  Age: 64 Year
  Sex: Female

DRUGS (1)
  1. CAPECITABINE [Suspect]
     Active Substance: CAPECITABINE
     Dosage: FREQUENCY : TWICE A DAY;?
     Route: 048

REACTIONS (7)
  - Nausea [None]
  - Vomiting [None]
  - Decreased appetite [None]
  - Blood thyroid stimulating hormone increased [None]
  - Chest pain [None]
  - Gastrooesophageal reflux disease [None]
  - Therapy interrupted [None]

NARRATIVE: CASE EVENT DATE: 20230316
